FAERS Safety Report 4473932-6 (Version None)
Quarter: 2004Q4

REPORT INFORMATION
  Report Type: 
  Country: None (occurrence: None)
  Receive Date: 20041008
  Receipt Date: 20040921
  Transmission Date: 20050328
  Serious: Yes (Hospitalization)
  Sender: FDA-Public Use
  Company Number: USA040978971

PATIENT
  Age: 79 Year
  Sex: Female

DRUGS (2)
  1. CYMBALTA [Suspect]
     Dosage: 30 MG DAY
  2. AXERT [Concomitant]

REACTIONS (4)
  - CHILLS [None]
  - OESOPHAGEAL RUPTURE [None]
  - PYREXIA [None]
  - VOMITING [None]
